FAERS Safety Report 14348844 (Version 5)
Quarter: 2018Q2

REPORT INFORMATION
  Report Type: Report from Study
  Country: GB (occurrence: GB)
  Receive Date: 20180104
  Receipt Date: 20180426
  Transmission Date: 20180711
  Serious: Yes (Other)
  Sender: FDA-Public Use
  Company Number: GB-ROCHE-2032197

PATIENT
  Sex: Female

DRUGS (1)
  1. ROACTEMRA [Suspect]
     Active Substance: TOCILIZUMAB
     Indication: RHEUMATOID ARTHRITIS
     Route: 058
     Dates: start: 20171122

REACTIONS (25)
  - Tinnitus [Unknown]
  - Syncope [Unknown]
  - Injection site mass [Unknown]
  - Back pain [Unknown]
  - Skin disorder [Unknown]
  - Fatigue [Unknown]
  - Urinary tract infection [Unknown]
  - Rash generalised [Unknown]
  - Rash pruritic [Unknown]
  - Lower limb fracture [Unknown]
  - Headache [Unknown]
  - Inflammation [Unknown]
  - Malaise [Unknown]
  - Pruritus [Unknown]
  - Vomiting [Unknown]
  - Nerve compression [Unknown]
  - Feeling abnormal [Unknown]
  - Pain [Unknown]
  - Swelling [Unknown]
  - Lower respiratory tract infection [Unknown]
  - Middle insomnia [Unknown]
  - Infection [Unknown]
  - Fall [Unknown]
  - Peripheral swelling [Unknown]
  - Dizziness [Unknown]
